FAERS Safety Report 7243383-X (Version None)
Quarter: 2011Q1

REPORT INFORMATION
  Report Type: 
  Country: None (occurrence: None)
  Receive Date: 20110125
  Receipt Date: 20110117
  Transmission Date: 20110831
  Serious: Yes (Death, Other)
  Sender: FDA-Public Use
  Company Number: KR-ELI_LILLY_AND_COMPANY-KR201101004063

PATIENT

DRUGS (3)
  1. GEMCITABINE HYDROCHLORIDE [Suspect]
     Indication: NON-SMALL CELL LUNG CANCER
     Dosage: 1000 MG/M2, UNKNOWN
     Route: 065
  2. BEVACIZUMAB [Concomitant]
     Dosage: 15 MG/KG, UNKNOWN
     Route: 065
  3. CARBOPLATIN [Concomitant]
     Dosage: AUC 5
     Route: 065

REACTIONS (2)
  - SEPTIC SHOCK [None]
  - NEUTROPENIA [None]
